FAERS Safety Report 12958714 (Version 1)
Quarter: 2016Q4

REPORT INFORMATION
  Report Type: Spontaneous
  Country: FR (occurrence: FR)
  Receive Date: 20161121
  Receipt Date: 20161121
  Transmission Date: 20170207
  Serious: Yes (Hospitalization)
  Sender: FDA-Public Use
  Company Number: FR-009507513-1611FRA008529

PATIENT
  Age: 76 Year
  Sex: Female
  Weight: 94 kg

DRUGS (6)
  1. COLCHIMAX (COLCHICINE (+) DICYCLOMINE HYDROCHLORIDE) [Concomitant]
     Active Substance: COLCHICINE\DICYCLOMINE HYDROCHLORIDE
     Indication: GOUT
     Dosage: 1 DF QD
     Route: 048
  2. CHOLECALCIFEROL [Concomitant]
     Active Substance: CHOLECALCIFEROL
     Dosage: UNK
     Route: 048
     Dates: end: 20161021
  3. INVANZ [Suspect]
     Active Substance: ERTAPENEM SODIUM
     Indication: DEVICE RELATED INFECTION
     Dosage: 2 G QD
     Route: 058
     Dates: start: 20161011, end: 20161022
  4. CALCIUM CARBONATE. [Concomitant]
     Active Substance: CALCIUM CARBONATE
     Dosage: UNK
     Route: 048
     Dates: end: 20161021
  5. SORIATANE [Concomitant]
     Active Substance: ACITRETIN
     Indication: DERMATITIS PSORIASIFORM
     Dosage: 10 MG QD
     Route: 048
  6. RIFADIN [Suspect]
     Active Substance: RIFAMPIN
     Indication: DEVICE RELATED INFECTION
     Dosage: 1200 MG QD
     Route: 048
     Dates: start: 20161011, end: 20161021

REACTIONS (4)
  - Myoclonus [Recovered/Resolved]
  - Hallucination [Recovered/Resolved]
  - Confusional state [Recovered/Resolved]
  - Encephalopathy [Recovered/Resolved]

NARRATIVE: CASE EVENT DATE: 20161018
